FAERS Safety Report 6101773-2 (Version None)
Quarter: 2009Q1

REPORT INFORMATION
  Report Type: 
  Country: None (occurrence: None)
  Receive Date: 20090303
  Receipt Date: 20090303
  Transmission Date: 20090719
  Serious: Yes (Other)
  Sender: FDA-Public Use
  Company Number: None

PATIENT
  Age: 6 Year
  Sex: Male
  Weight: 19.5047 kg

DRUGS (3)
  1. RISPERIDONE [Suspect]
     Indication: ATTENTION DEFICIT/HYPERACTIVITY DISORDER
     Dosage: 1 TABLET 2 XS A DAY PO
     Route: 048
     Dates: start: 20090226, end: 20090309
  2. RISPERIDONE [Suspect]
     Indication: BIPOLAR DISORDER
     Dosage: 1 TABLET 2 XS A DAY PO
     Route: 048
     Dates: start: 20090226, end: 20090309
  3. RISPERIDONE [Suspect]
     Indication: OPPOSITIONAL DEFIANT DISORDER
     Dosage: 1 TABLET 2 XS A DAY PO
     Route: 048
     Dates: start: 20090226, end: 20090309

REACTIONS (2)
  - ACTIVITIES OF DAILY LIVING IMPAIRED [None]
  - HYPERSOMNIA [None]
